FAERS Safety Report 23370153 (Version 1)
Quarter: 2024Q1

REPORT INFORMATION
  Report Type: Spontaneous
  Country: GB (occurrence: None)
  Receive Date: 20240105
  Receipt Date: 20240105
  Transmission Date: 20240410
  Serious: Yes (Disabling)
  Sender: FDA-Public Use
  Company Number: 2023A285622

PATIENT
  Age: 19799 Day
  Sex: Female
  Weight: 52 kg

DRUGS (1)
  1. OSIMERTINIB [Suspect]
     Active Substance: OSIMERTINIB
     Dosage: 80.0MG UNKNOWN
     Route: 048
     Dates: start: 20230209, end: 20230616

REACTIONS (3)
  - Skin hyperpigmentation [Not Recovered/Not Resolved]
  - Erythema dyschromicum perstans [Not Recovered/Not Resolved]
  - Pain [Unknown]

NARRATIVE: CASE EVENT DATE: 20230209
